FAERS Safety Report 23443061 (Version 1)
Quarter: 2024Q1

REPORT INFORMATION
  Report Type: Spontaneous
  Country: US (occurrence: None)
  Receive Date: 20240125
  Receipt Date: 20240125
  Transmission Date: 20240409
  Serious: Yes (Hospitalization)
  Sender: FDA-Public Use
  Company Number: None

PATIENT
  Age: 4 Year
  Sex: Female
  Weight: 17.6 kg

DRUGS (4)
  1. DEXAMETHASONE [Suspect]
     Active Substance: DEXAMETHASONE
  2. MERCAPTOPURINE [Concomitant]
  3. METHOTREXATE [Concomitant]
  4. VINCRISTINE SULFATE [Concomitant]

REACTIONS (4)
  - Seizure [None]
  - Blood glucose decreased [None]
  - Rhinovirus infection [None]
  - Enterovirus infection [None]

NARRATIVE: CASE EVENT DATE: 20240117
